FAERS Safety Report 25570646 (Version 1)
Quarter: 2025Q3

REPORT INFORMATION
  Report Type: Spontaneous
  Country: US (occurrence: US)
  Receive Date: 20250717
  Receipt Date: 20250717
  Transmission Date: 20251021
  Serious: No
  Sender: EMD SERONO INC
  Company Number: US-Merck Healthcare KGaA-2025032588

PATIENT
  Age: 86 Year
  Sex: Male

DRUGS (1)
  1. BAVENCIO [Suspect]
     Active Substance: AVELUMAB
     Indication: Ureteric cancer
     Dosage: EXPIRATION DATE: 30-SEP-2027
     Dates: start: 202505

REACTIONS (1)
  - Fatigue [Unknown]
